FAERS Safety Report 5901554-6 (Version None)
Quarter: 2008Q3

REPORT INFORMATION
  Report Type: 
  Country: None (occurrence: None)
  Receive Date: 20080926
  Receipt Date: 20080926
  Transmission Date: 20090109
  Serious: Yes (Hospitalization)
  Sender: FDA-Public Use
  Company Number: None

PATIENT
  Sex: Female
  Weight: 81.4 kg

DRUGS (4)
  1. XELODA [Suspect]
     Dosage: 1500 MG
     Dates: end: 20080916
  2. ELOXATIN [Suspect]
     Dosage: 90 MG
     Dates: end: 20080916
  3. DYAZIDE [Concomitant]
  4. LOTREL [Concomitant]

REACTIONS (4)
  - DEHYDRATION [None]
  - DIARRHOEA [None]
  - HYPOTENSION [None]
  - UROSEPSIS [None]
